FAERS Safety Report 5480161-6 (Version None)
Quarter: 2007Q4

REPORT INFORMATION
  Report Type: 
  Country: None (occurrence: None)
  Receive Date: 20071003
  Receipt Date: 20070919
  Transmission Date: 20080405
  Serious: Yes (Other)
  Sender: FDA-Public Use
  Company Number: CHNY2007GB03218

PATIENT
  Sex: Male

DRUGS (3)
  1. EX-LAX (NCH)(SENNA GLYCOSIDES (CA SALTS OF PURIFIED SENNA EXTRACT) TAB [Suspect]
     Indication: WEIGHT DECREASED
     Dosage: ORAL
     Route: 048
  2. XENICAL [Concomitant]
  3. ORISTAT [Concomitant]

REACTIONS (2)
  - DRUG INEFFECTIVE [None]
  - INTENTIONAL DRUG MISUSE [None]
